FAERS Safety Report 20802218 (Version 2)
Quarter: 2023Q2

REPORT INFORMATION
  Report Type: Spontaneous
  Country: US (occurrence: US)
  Receive Date: 20220509
  Receipt Date: 20230601
  Transmission Date: 20230721
  Serious: No
  Sender: FDA-Public Use
  Company Number: US-UCBSA-2022011887

PATIENT
  Sex: Female

DRUGS (1)
  1. CIMZIA [Suspect]
     Active Substance: CERTOLIZUMAB PEGOL
     Indication: Rheumatoid arthritis
     Dosage: 400 MILLIGRAM

REACTIONS (6)
  - Product prescribing issue [Unknown]
  - Therapy interrupted [Unknown]
  - Back pain [Unknown]
  - Diarrhoea [Unknown]
  - Hepatic pain [Unknown]
  - Nausea [Unknown]
